FAERS Safety Report 9452330 (Version 1)
Quarter: 2013Q3

REPORT INFORMATION
  Report Type: Spontaneous
  Country: DK (occurrence: DK)
  Receive Date: 20130812
  Receipt Date: 20130812
  Transmission Date: 20140515
  Serious: Yes (Hospitalization, Other)
  Sender: FDA-Public Use
  Company Number: DK-ELI_LILLY_AND_COMPANY-DK201308000987

PATIENT
  Sex: Female
  Weight: 71 kg

DRUGS (3)
  1. ZYPREXA [Suspect]
     Dosage: 1 DF, UNKNOWN
     Route: 065
     Dates: start: 20090407, end: 201111
  2. RISPERDAL [Suspect]
     Dosage: 1 DF, UNKNOWN
     Route: 065
     Dates: start: 20090407, end: 201111
  3. RISPERDAL CONSTA [Suspect]
     Dosage: 1 DF, UNKNOWN
     Route: 065
     Dates: start: 20090407, end: 201111

REACTIONS (6)
  - Intra-abdominal haemorrhage [Unknown]
  - Abdominal pain [Not Recovered/Not Resolved]
  - Diarrhoea [Not Recovered/Not Resolved]
  - Constipation [Not Recovered/Not Resolved]
  - Gait disturbance [Unknown]
  - Back pain [Unknown]
